FAERS Safety Report 4963771-1 (Version None)
Quarter: 2006Q1

REPORT INFORMATION
  Report Type: 
  Country: None (occurrence: None)
  Receive Date: 20060330
  Receipt Date: 20060320
  Transmission Date: 20060701
  Serious: Yes (Death)
  Sender: FDA-Public Use
  Company Number: 2006039491

PATIENT
  Age: 34 Year
  Sex: Male
  Weight: 90.7194 kg

DRUGS (2)
  1. XANAX [Suspect]
     Indication: ILL-DEFINED DISORDER
  2. OXYCODONE (OXYCODONE) [Suspect]
     Indication: ILL-DEFINED DISORDER

REACTIONS (2)
  - DRUG TOXICITY [None]
  - SELF-MEDICATION [None]
